FAERS Safety Report 7772009-1 (Version None)
Quarter: 2011Q3

REPORT INFORMATION
  Report Type: 
  Country: None (occurrence: None)
  Receive Date: 20110922
  Receipt Date: 20110131
  Transmission Date: 20111222
  Serious: Yes (Other)
  Sender: FDA-Public Use
  Company Number: US-ASTRAZENECA-2011SE05556

PATIENT
  Age: 58 Year
  Sex: Female
  Weight: 84.4 kg

DRUGS (9)
  1. NORVASC [Concomitant]
  2. POTASSIUM CHLORIDE [Concomitant]
  3. TAMAZIPAM [Concomitant]
  4. METOPROLOL [Concomitant]
     Indication: HYPERTENSION
  5. HYDROCODONE [Concomitant]
     Indication: PAIN
  6. SEROQUEL [Suspect]
     Indication: POST-TRAUMATIC STRESS DISORDER
     Dosage: 100 MG AT 9AM, 1PM, 5PM AND 2-100MG TABLETS AT 9PM
     Route: 048
     Dates: start: 20100901
  7. KEPRA [Concomitant]
  8. LORAZEPAM [Concomitant]
  9. EFFEXOR [Concomitant]

REACTIONS (6)
  - CEREBROVASCULAR ACCIDENT [None]
  - DRUG DOSE OMISSION [None]
  - PYREXIA [None]
  - INFECTION [None]
  - CRYING [None]
  - CONVULSION [None]
